FAERS Safety Report 8487221-6 (Version None)
Quarter: 2012Q3

REPORT INFORMATION
  Report Type: 
  Country: None (occurrence: None)
  Receive Date: 20120705
  Receipt Date: 20120619
  Transmission Date: 20120928
  Serious: Yes (Hospitalization)
  Sender: FDA-Public Use
  Company Number: NL-ROCHE-1074701

PATIENT
  Sex: Female
  Weight: 54 kg

DRUGS (15)
  1. CIPROFLOXACIN HCL [Concomitant]
     Dosage: 2 X 500 MG
     Route: 048
     Dates: start: 20120504
  2. MABTHERA [Suspect]
     Indication: MALIGNANT LYMPHOID NEOPLASM
     Dosage: LAST DOSE PRIOR TO SAE 08/MAY/2012
     Route: 042
     Dates: start: 20120508
  3. DEXAMETHASONE [Suspect]
     Dosage: LAST DOSE PRIOR TO SAE 08/JUN/2012
     Route: 042
     Dates: start: 20120605
  4. CISPLATIN [Suspect]
     Indication: MALIGNANT LYMPHOID NEOPLASM
     Dosage: LAST DOSE PRIOR TO SAE 05/MAY/2012
     Route: 042
     Dates: start: 20120504
  5. CISPLATIN [Suspect]
     Dosage: LAST DOSE PRIOR TO SAE 05/JUN/2012
     Route: 042
     Dates: start: 20120605
  6. MABTHERA [Suspect]
     Dosage: LAST DOSE PRIOR TO SAE 09/JUN/2012
     Route: 042
     Dates: start: 20120609
  7. CYTARABINE [Suspect]
     Indication: MALIGNANT LYMPHOID NEOPLASM
     Dosage: LAST DOSE PRIOR TO SAE 05/MAY/2012
     Route: 042
     Dates: start: 20120505
  8. AUGMENTIN '125' [Concomitant]
     Indication: INFECTION PROPHYLAXIS
     Dosage: 4 X 1200 MG
     Route: 042
     Dates: start: 20120606
  9. VALGANCICLOVIR [Concomitant]
     Dosage: 2 X 450 MG
     Route: 048
     Dates: start: 20120522
  10. KEPPRA [Concomitant]
     Indication: EPILEPSY
     Dosage: 2 X 500 MG
     Route: 048
     Dates: start: 20120607
  11. CYTARABINE [Suspect]
     Dosage: LAST DOSE PRIOR TO SAE 06/JUN/2012
     Route: 042
     Dates: start: 20120606
  12. FUNGIZONE [Concomitant]
     Indication: FUNGAL INFECTION
     Dosage: 4 X 500 MG
     Route: 048
     Dates: start: 20120605
  13. NEXIUM [Concomitant]
     Indication: DYSPEPSIA
     Dosage: 1 X 40 MG
     Route: 042
     Dates: start: 20120606
  14. DEXAMETHASONE [Suspect]
     Indication: MALIGNANT LYMPHOID NEOPLASM
     Dosage: LAST DOSE PRIOR TO SAE 07/MAY/2012
     Route: 042
     Dates: start: 20120504
  15. ALLOPURINOL [Concomitant]
     Dosage: 1 X 300
     Route: 048
     Dates: start: 20120504

REACTIONS (3)
  - CONVULSION [None]
  - FEBRILE NEUTROPENIA [None]
  - PYREXIA [None]
